FAERS Safety Report 10434640 (Version 2)
Quarter: 2014Q3

REPORT INFORMATION
  Report Type: Spontaneous
  Country: BR (occurrence: BR)
  Receive Date: 20140906
  Receipt Date: 20140906
  Transmission Date: 20150326
  Serious: Yes (Hospitalization)
  Sender: FDA-Public Use
  Company Number: BR-ABBVIE-14K-020-1267166-00

PATIENT
  Sex: Male

DRUGS (2)
  1. LOSARTAN [Concomitant]
     Active Substance: LOSARTAN
     Indication: BLOOD PRESSURE ABNORMAL
  2. HUMIRA [Suspect]
     Active Substance: ADALIMUMAB
     Indication: CROHN^S DISEASE
     Dates: start: 2013

REACTIONS (7)
  - Muscular weakness [Unknown]
  - Paraesthesia [Not Recovered/Not Resolved]
  - Gait disturbance [Unknown]
  - Crohn^s disease [Unknown]
  - Neuropathy peripheral [Recovering/Resolving]
  - Neuropathy peripheral [Unknown]
  - Fall [Unknown]

NARRATIVE: CASE EVENT DATE: 201406
